FAERS Safety Report 4512402-3 (Version None)
Quarter: 2004Q4

REPORT INFORMATION
  Report Type: 
  Country: None (occurrence: None)
  Receive Date: 20041123
  Receipt Date: 20041115
  Transmission Date: 20050328
  Serious: Yes (Hospitalization)
  Sender: FDA-Public Use
  Company Number: MPS1-10301

PATIENT
  Age: 7 Year
  Sex: Male
  Weight: 16.4 kg

DRUGS (6)
  1. ALDURAZYME [Suspect]
     Indication: MUCOPOLYSACCHARIDOSIS I
     Dosage: 0.58 MG/KG QWK IV
     Route: 042
     Dates: start: 20041110
  2. ALDURAZYME [Suspect]
     Indication: MUCOPOLYSACCHARIDOSIS
     Dosage: 1.2 MG/KG QWK IV
     Route: 042
     Dates: start: 20040426, end: 20041019
  3. IBUPROFEN [Concomitant]
  4. BENADRYL [Concomitant]
  5. HEPARIN [Concomitant]
  6. MULTIVITE [Concomitant]

REACTIONS (9)
  - BODY TEMPERATURE DECREASED [None]
  - BRONCHOSPASM [None]
  - DIARRHOEA [None]
  - HEART RATE INCREASED [None]
  - HYPERCAPNIA [None]
  - PNEUMONIA VIRAL [None]
  - RESPIRATORY DISTRESS [None]
  - UPPER RESPIRATORY TRACT INFECTION [None]
  - VOMITING [None]
